FAERS Safety Report 25363754 (Version 1)
Quarter: 2025Q2

REPORT INFORMATION
  Report Type: Spontaneous
  Country: BG (occurrence: BG)
  Receive Date: 20250527
  Receipt Date: 20250527
  Transmission Date: 20250717
  Serious: Yes (Life-Threatening, Other)
  Sender: MYLAN
  Company Number: BG-BRISTOL-MYERS SQUIBB COMPANY-2025-067369

PATIENT

DRUGS (3)
  1. POMALIDOMIDE [Suspect]
     Active Substance: POMALIDOMIDE
     Indication: Plasma cell myeloma
  2. ISATUXIMAB [Concomitant]
     Active Substance: ISATUXIMAB
     Indication: Plasma cell myeloma
  3. DEXAMETHASONE [Concomitant]
     Active Substance: DEXAMETHASONE
     Indication: Plasma cell myeloma

REACTIONS (5)
  - Coombs indirect test positive [Unknown]
  - Infusion related reaction [Unknown]
  - Plasma cell myeloma [Unknown]
  - Neutropenia [Unknown]
  - Therapeutic agent-diagnostic test interaction [Unknown]
